FAERS Safety Report 6388415-6 (Version None)
Quarter: 2009Q4

REPORT INFORMATION
  Report Type: 
  Country: None (occurrence: None)
  Receive Date: 20091005
  Receipt Date: 20090930
  Transmission Date: 20100525
  Serious: Yes (Other)
  Sender: FDA-Public Use
  Company Number: FR-BRISTOL-MYERS SQUIBB COMPANY-14728851

PATIENT
  Age: 36 Year
  Sex: Female
  Weight: 65 kg

DRUGS (3)
  1. SUSTIVA [Suspect]
     Indication: HIV INFECTION
     Dates: start: 20031218
  2. TRUVADA [Suspect]
     Indication: HIV INFECTION
     Dates: start: 20060124
  3. TARDYFERON [Concomitant]
     Dates: start: 20090511

REACTIONS (1)
  - BREAST CANCER [None]
